FAERS Safety Report 8119555-9 (Version None)
Quarter: 2012Q1

REPORT INFORMATION
  Report Type: 
  Country: None (occurrence: None)
  Receive Date: 20120207
  Receipt Date: 20120131
  Transmission Date: 20120608
  Serious: Yes (Hospitalization)
  Sender: FDA-Public Use
  Company Number: PHHY2012JP009515

PATIENT

DRUGS (1)
  1. NEORAL [Suspect]
     Dosage: UNK UKN, UNK
     Route: 048

REACTIONS (1)
  - SPINAL COLUMN STENOSIS [None]
